FAERS Safety Report 21022838 (Version 1)
Quarter: 2022Q2

REPORT INFORMATION
  Report Type: Spontaneous
  Country: CN (occurrence: CN)
  Receive Date: 20220629
  Receipt Date: 20220629
  Transmission Date: 20220721
  Serious: Yes (Other)
  Sender: FDA-Public Use
  Company Number: None

PATIENT
  Age: 55 Year
  Sex: Female
  Weight: 74 kg

DRUGS (6)
  1. CYCLOPHOSPHAMIDE [Suspect]
     Active Substance: CYCLOPHOSPHAMIDE
     Indication: Invasive ductal breast carcinoma
     Dosage: 1 G, QD, DISPOSABLE, CYCLOPHOSPHAMIDE FOR INJECTION (1G) DILUTED WITH 0.9% SODIUM CHLORIDE INJECTION
     Route: 041
     Dates: start: 20220531, end: 20220531
  2. CYCLOPHOSPHAMIDE [Suspect]
     Active Substance: CYCLOPHOSPHAMIDE
     Indication: Hormone receptor positive breast cancer
  3. SODIUM CHLORIDE [Suspect]
     Active Substance: SODIUM CHLORIDE
     Indication: Medication dilution
     Dosage: 100 ML, QD, DISPOSABLE, CYCLOPHOSPHAMIDE FOR INJECTION (1G) DILUTED WITH 0.9% SODIUM CHLORIDE INJECT
     Route: 041
     Dates: start: 20220531, end: 20220531
  4. ANHYDROUS DEXTROSE [Suspect]
     Active Substance: ANHYDROUS DEXTROSE
     Indication: Medication dilution
     Dosage: 250 ML, QD, DISPOSABLE, PIRARUBICIN HYDROCHLORIDE FOR INJECTION (87MG) DILUTED WITH 5% GLUCOSE INJEC
     Route: 041
     Dates: start: 20220531, end: 20220531
  5. PIRARUBICIN HYDROCHLORIDE [Suspect]
     Active Substance: PIRARUBICIN HYDROCHLORIDE
     Indication: Invasive ductal breast carcinoma
     Dosage: 87 MG, QD, DISPOSABLE, PIRARUBICIN HYDROCHLORIDE FOR INJECTION (87MG) DILUTED WITH 5% GLUCOSE INJECT
     Route: 041
     Dates: start: 20220531, end: 20220531
  6. PIRARUBICIN HYDROCHLORIDE [Suspect]
     Active Substance: PIRARUBICIN HYDROCHLORIDE
     Indication: Hormone receptor positive breast cancer

REACTIONS (2)
  - White blood cell count decreased [Unknown]
  - Neutrophil count decreased [Unknown]

NARRATIVE: CASE EVENT DATE: 20220621
